FAERS Safety Report 13483781 (Version 2)
Quarter: 2017Q3

REPORT INFORMATION
  Report Type: Report from Study
  Country: None (occurrence: US)
  Receive Date: 20170426
  Receipt Date: 20170716
  Transmission Date: 20171127
  Serious: Yes (Other)
  Sender: FDA-Public Use
  Company Number: US-ABBVIE-17K-163-1949657-00

PATIENT
  Sex: Male

DRUGS (1)
  1. HUMIRA [Suspect]
     Active Substance: ADALIMUMAB
     Indication: CROHN^S DISEASE
     Route: 058

REACTIONS (5)
  - Anal fistula [Recovering/Resolving]
  - Rectal discharge [Recovering/Resolving]
  - Purulent discharge [Recovering/Resolving]
  - Inflammation [Not Recovered/Not Resolved]
  - Acrochordon [Not Recovered/Not Resolved]
